FAERS Safety Report 8162216 (Version 6)
Quarter: 2013Q4

REPORT INFORMATION
  Report Type: Report from Study
  Country: JP (occurrence: JP)
  Receive Date: 20110929
  Receipt Date: 20131211
  Transmission Date: 20140711
  Serious: Yes (Hospitalization, Other)
  Sender: FDA-Public Use
  Company Number: JP-TEVA-2011005142

PATIENT
  Age: 73 Year
  Sex: Male
  Weight: 70 kg

DRUGS (14)
  1. BENDAMUSTINE [Suspect]
     Indication: MANTLE CELL LYMPHOMA
     Dosage: POWDER; AS DIRECTED/ONCE A DAY
     Route: 042
     Dates: start: 20110124, end: 20110125
  2. BENDAMUSTINE [Suspect]
     Dosage: POWDER; AS DIRECTED/ONCE A DAY
     Route: 042
     Dates: start: 20110416, end: 20110417
  3. BENDAMUSTINE [Suspect]
     Dosage: POWDER; AS DIRECTED/ONCE A DAY
     Route: 042
     Dates: start: 20110603, end: 20110604
  4. BENDAMUSTINE [Suspect]
     Dosage: POWDER; AS DIRECTED/ONCE A DAY
     Route: 042
     Dates: start: 20110325, end: 20110326
  5. BENDAMUSTINE [Suspect]
     Dosage: POWDER; AS DIRECTED/ONCE A DAY
     Route: 042
     Dates: start: 20110224, end: 20110225
  6. BENDAMUSTINE [Suspect]
     Dosage: POWDER; AS DIRECTED/ONCE A DAY
     Route: 042
     Dates: start: 20110706
  7. BENDAMUSTINE [Suspect]
     Dosage: POWDER; AS DIRECTED/ONCE A DAY
     Route: 042
     Dates: start: 20110829, end: 20110830
  8. RITUXIMAB [Suspect]
     Indication: MANTLE CELL LYMPHOMA
     Route: 042
     Dates: start: 20110606, end: 20110606
  9. RITUXIMAB [Suspect]
     Route: 042
     Dates: start: 20110709
  10. METHYLPREDNISOLONE [Concomitant]
     Dates: start: 20110123, end: 20110125
  11. ALLOPURINOL [Concomitant]
     Dates: start: 20110121, end: 20110307
  12. ACYCLOVIR [Concomitant]
  13. PREDNISOLONE [Concomitant]
     Dates: start: 20110126
  14. JUZENTAIHOTO [Concomitant]

REACTIONS (6)
  - Neutrophil count decreased [Recovered/Resolved]
  - Febrile neutropenia [Recovered/Resolved]
  - White blood cell count decreased [Not Recovered/Not Resolved]
  - Platelet count decreased [Recovered/Resolved]
  - Bone marrow failure [Not Recovered/Not Resolved]
  - Lymphocyte count decreased [Recovered/Resolved]
